FAERS Safety Report 4541314-4 (Version None)
Quarter: 2004Q4

REPORT INFORMATION
  Report Type: 
  Country: None (occurrence: None)
  Receive Date: 20041222
  Receipt Date: 20041214
  Transmission Date: 20050328
  Serious: Yes (Life-Threatening, Disabling)
  Sender: FDA-Public Use
  Company Number: 2004JP002212

PATIENT
  Age: 6 Year
  Sex: Male

DRUGS (1)
  1. PROGRAF [Suspect]
     Indication: LIVER TRANSPLANT

REACTIONS (7)
  - CONVULSION [None]
  - EMOTIONAL DISORDER [None]
  - ENCEPHALOPATHY [None]
  - MENTAL RETARDATION SEVERITY UNSPECIFIED [None]
  - NUCLEAR MAGNETIC RESONANCE IMAGING BRAIN ABNORMAL [None]
  - RESPIRATORY ARREST [None]
  - VOMITING [None]
